FAERS Safety Report 5421612-2 (Version None)
Quarter: 2007Q3

REPORT INFORMATION
  Report Type: 
  Country: None (occurrence: None)
  Receive Date: 20070821
  Receipt Date: 20070809
  Transmission Date: 20080115
  Serious: Yes (Hospitalization, Other)
  Sender: FDA-Public Use
  Company Number: IT-PFIZER INC-2007066799

PATIENT
  Age: 57 Year
  Sex: Male

DRUGS (2)
  1. GABAPENTIN [Suspect]
     Indication: ESSENTIAL TREMOR
     Dosage: DAILY DOSE:900MG
  2. PROPRANOLOL [Concomitant]
     Dosage: DAILY DOSE:20MG

REACTIONS (7)
  - BLOOD CREATINE PHOSPHOKINASE INCREASED [None]
  - METABOLIC ACIDOSIS [None]
  - MYOCLONIC EPILEPSY [None]
  - MYOCLONUS [None]
  - RESPIRATORY FAILURE [None]
  - TRANSAMINASES INCREASED [None]
  - TREMOR [None]
